FAERS Safety Report 24025874 (Version 1)
Quarter: 2024Q2

REPORT INFORMATION
  Report Type: Spontaneous
  Country: LB (occurrence: LB)
  Receive Date: 20240628
  Receipt Date: 20240628
  Transmission Date: 20240716
  Serious: No
  Sender: FDA-Public Use
  Company Number: LB-ROCHE-3506382

PATIENT
  Age: 35 Year
  Sex: Female

DRUGS (1)
  1. PHESGO [Suspect]
     Active Substance: HYALURONIDASE-ZZXF\PERTUZUMAB\TRASTUZUMAB
     Indication: Breast cancer
     Route: 058

REACTIONS (1)
  - Radiation skin injury [Recovered/Resolved]

NARRATIVE: CASE EVENT DATE: 20231001
